FAERS Safety Report 6686422-7 (Version None)
Quarter: 2010Q2

REPORT INFORMATION
  Report Type: 
  Country: None (occurrence: None)
  Receive Date: 20100419
  Receipt Date: 20100413
  Transmission Date: 20101027
  Serious: Yes (Life-Threatening, Disabling, Other)
  Sender: FDA-Public Use
  Company Number: A0851810A

PATIENT
  Age: 45 Year
  Sex: Female

DRUGS (4)
  1. LAMOTRIGINE [Suspect]
     Dosage: 400MG TWICE PER DAY
     Route: 048
     Dates: start: 20030101, end: 20090101
  2. LEVETIRACETAM [Concomitant]
  3. CELEXA [Concomitant]
  4. LAMICTAL [Concomitant]
     Route: 065

REACTIONS (4)
  - CONVULSION [None]
  - DRUG INEFFECTIVE [None]
  - HYPOAESTHESIA [None]
  - PARTIAL SEIZURES [None]
